FAERS Safety Report 10060411 (Version 2)
Quarter: 2014Q2

REPORT INFORMATION
  Report Type: Spontaneous
  Country: CA (occurrence: CA)
  Receive Date: 20140404
  Receipt Date: 20140404
  Transmission Date: 20141212
  Serious: Yes (Other)
  Sender: FDA-Public Use
  Company Number: CA-ABBVIE-13P-028-1039995-00

PATIENT
  Sex: Male

DRUGS (1)
  1. HUMIRA [Suspect]
     Indication: ANKYLOSING SPONDYLITIS
     Dates: start: 201209

REACTIONS (5)
  - Tendon rupture [Unknown]
  - Tendon rupture [Unknown]
  - Tendonitis [Unknown]
  - Activities of daily living impaired [Unknown]
  - Ankylosing spondylitis [Unknown]
